FAERS Safety Report 18878262 (Version 1)
Quarter: 2021Q1

REPORT INFORMATION
  Report Type: Report from Study
  Country: None (occurrence: US)
  Receive Date: 20210211
  Receipt Date: 20210211
  Transmission Date: 20210420
  Serious: Yes (Hospitalization)
  Sender: FDA-Public Use
  Company Number: US-ABBVIE-21K-163-3765341-00

PATIENT
  Age: 71 Year
  Sex: Female
  Weight: 76.27 kg

DRUGS (2)
  1. CREON [Suspect]
     Active Substance: PANCRELIPASE AMYLASE\PANCRELIPASE LIPASE\PANCRELIPASE PROTEASE
     Dosage: 3 CAPSULES EVERY MEAL AND 1 CAPSULE WITH SNACK
     Route: 048
     Dates: start: 2021
  2. CREON [Suspect]
     Active Substance: PANCRELIPASE AMYLASE\PANCRELIPASE LIPASE\PANCRELIPASE PROTEASE
     Indication: PANCREATIC FAILURE
     Dosage: 2 CAPSULES EVERY MEAL AND 1 CAPSULE WITH SNACK
     Route: 048
     Dates: start: 2020, end: 2021

REACTIONS (3)
  - Localised infection [Recovered/Resolved]
  - Sepsis [Recovered/Resolved]
  - Cystitis [Recovered/Resolved]

NARRATIVE: CASE EVENT DATE: 202008
